FAERS Safety Report 4693081-1 (Version None)
Quarter: 2005Q2

REPORT INFORMATION
  Report Type: 
  Country: None (occurrence: None)
  Receive Date: 20050128
  Receipt Date: 20050128
  Transmission Date: 20051028
  Serious: No
  Sender: FDA-Public Use
  Company Number: None

PATIENT

DRUGS (2)
  1. VICODIN [Suspect]
     Indication: BACK PAIN
     Dosage: 7.5 / 500
  2. VICODIN [Suspect]
     Indication: SCOLIOSIS
     Dosage: 7.5 / 500

REACTIONS (1)
  - INADEQUATE ANALGESIA [None]
